FAERS Safety Report 8601905-8 (Version None)
Quarter: 2012Q3

REPORT INFORMATION
  Report Type: 
  Country: None (occurrence: None)
  Receive Date: 20120817
  Receipt Date: 20120618
  Transmission Date: 20120928
  Serious: No
  Sender: FDA-Public Use
  Company Number: US-BRISTOL-MYERS SQUIBB COMPANY-16595506

PATIENT
  Age: 50 Year
  Sex: Female
  Weight: 91 kg

DRUGS (3)
  1. SPRYCEL [Suspect]
     Indication: CHRONIC MYELOID LEUKAEMIA
     Dosage: PILL
     Route: 048
     Dates: start: 20120412, end: 20120413
  2. GLEEVEC [Concomitant]
     Dates: end: 20120411
  3. TASIGNA [Concomitant]

REACTIONS (8)
  - CHEST DISCOMFORT [None]
  - HEADACHE [None]
  - DIZZINESS [None]
  - HEAD DISCOMFORT [None]
  - DYSPNOEA [None]
  - HEART RATE INCREASED [None]
  - DIARRHOEA [None]
  - CHEST PAIN [None]
